FAERS Safety Report 15006130 (Version 1)
Quarter: 2018Q2

REPORT INFORMATION
  Report Type: Spontaneous
  Country: US (occurrence: US)
  Receive Date: 20180613
  Receipt Date: 20180613
  Transmission Date: 20180711
  Serious: No
  Sender: FDA-Public Use
  Company Number: US-GALDERMA-US18001327

PATIENT
  Age: 16 Year
  Sex: Female

DRUGS (7)
  1. PROACTIV MD ADAPALENE ACNE TREATMENT [Suspect]
     Active Substance: ADAPALENE
     Indication: PRODUCT USED FOR UNKNOWN INDICATION
     Dosage: 0.1%
     Route: 061
     Dates: start: 20170910, end: 20171009
  2. PROACTIV SKIN PURIFYING MASK [Concomitant]
     Active Substance: SULFUR
     Route: 061
     Dates: start: 20170910, end: 20171009
  3. CALCIUM [Concomitant]
     Active Substance: CALCIUM
     Route: 048
  4. PROACTIV MD DEEP CLEANSING FACE WASH [Concomitant]
     Active Substance: COSMETICS
     Route: 061
     Dates: start: 20170910, end: 20171009
  5. FISH OIL [Concomitant]
     Active Substance: FISH OIL
     Route: 048
  6. MULTIVITAMINS [Concomitant]
     Active Substance: VITAMINS
     Route: 048
  7. TYLENOL [Concomitant]
     Active Substance: ACETAMINOPHEN
     Route: 048

REACTIONS (3)
  - Skin exfoliation [Not Recovered/Not Resolved]
  - Erythema [Not Recovered/Not Resolved]
  - Dry skin [Not Recovered/Not Resolved]

NARRATIVE: CASE EVENT DATE: 20171003
